FAERS Safety Report 7777051-2 (Version None)
Quarter: 2011Q3

REPORT INFORMATION
  Report Type: 
  Country: None (occurrence: None)
  Receive Date: 20110926
  Receipt Date: 20110926
  Transmission Date: 20111222
  Serious: Yes (Other)
  Sender: FDA-Public Use
  Company Number: None

PATIENT
  Sex: Male
  Weight: 102.96 kg

DRUGS (2)
  1. CIPROFLOXACIN [Concomitant]
     Indication: ORCHITIS
     Dosage: 2 TABLETS
     Route: 048
     Dates: start: 20110830, end: 20110906
  2. NULYTELY [Suspect]
     Indication: BARIUM ENEMA
     Dosage: 1 GAL
     Route: 048
     Dates: start: 20110420, end: 20110420

REACTIONS (2)
  - DRUG HYPERSENSITIVITY [None]
  - ANGINA PECTORIS [None]
